FAERS Safety Report 9263463 (Version 1)
Quarter: 2013Q2

REPORT INFORMATION
  Report Type: Spontaneous
  Country: US (occurrence: US)
  Receive Date: 20130430
  Receipt Date: 20130430
  Transmission Date: 20140414
  Serious: No
  Sender: FDA-Public Use
  Company Number: US-ABBOTT-13P-163-1071477-00

PATIENT
  Age: 18 Year
  Sex: Female

DRUGS (7)
  1. CREON [Suspect]
     Indication: CYSTIC FIBROSIS
     Dosage: 24000 UNITS IN EACH CAPSULE, 4 CAPSULES WITH EACH MEAL
     Dates: start: 200306
  2. CREON [Suspect]
     Dosage: 24000 UNITS IN EACH CAPSULE, 3 CAPSULES WITH EACH SNACK
     Dates: start: 200306
  3. LEVALBUTEROL [Concomitant]
     Indication: PRODUCT USED FOR UNKNOWN INDICATION
  4. ADVAIR [Concomitant]
     Indication: PRODUCT USED FOR UNKNOWN INDICATION
  5. LANSOPRAZOLE [Concomitant]
     Indication: PRODUCT USED FOR UNKNOWN INDICATION
  6. AZITHROMYCIN [Concomitant]
     Indication: PRODUCT USED FOR UNKNOWN INDICATION
  7. PULMOZYME [Concomitant]
     Indication: PRODUCT USED FOR UNKNOWN INDICATION

REACTIONS (4)
  - Abdominal distension [Not Recovered/Not Resolved]
  - Abdominal pain [Not Recovered/Not Resolved]
  - Drug ineffective [Not Recovered/Not Resolved]
  - Abdominal discomfort [Not Recovered/Not Resolved]
